FAERS Safety Report 5312422-5 (Version None)
Quarter: 2007Q2

REPORT INFORMATION
  Report Type: 
  Country: None (occurrence: None)
  Receive Date: 20070430
  Receipt Date: 20061115
  Transmission Date: 20071010
  Serious: No
  Sender: FDA-Public Use
  Company Number: 2006UW24360

PATIENT
  Age: 57 Year
  Sex: Male
  Weight: 120.2 kg

DRUGS (4)
  1. NEXIUM [Suspect]
     Indication: GASTROOESOPHAGEAL REFLUX DISEASE
     Dosage: 1-2 CAPS
     Route: 048
     Dates: start: 20000101
  2. NEXIUM [Suspect]
     Indication: BARRETT'S OESOPHAGUS
     Dosage: 1-2 CAPS
     Route: 048
     Dates: start: 20000101
  3. ZANTAC [Concomitant]
  4. ZYRTEC [Concomitant]

REACTIONS (3)
  - BACK PAIN [None]
  - MUSCLE TWITCHING [None]
  - PHARYNGOLARYNGEAL PAIN [None]
